APPROVED DRUG PRODUCT: SODIUM IODIDE I 131
Active Ingredient: SODIUM IODIDE I-131
Strength: 2-200mCi
Dosage Form/Route: CAPSULE;ORAL
Application: N021305 | Product #004
Applicant: JUBILANT DRAXIMAGE INC DBA JUBILANT RADIOPHARMA
Approved: Nov 18, 2004 | RLD: No | RS: No | Type: DISCN